FAERS Safety Report 5359067-9 (Version None)
Quarter: 2007Q2

REPORT INFORMATION
  Report Type: 
  Country: None (occurrence: None)
  Receive Date: 20070530
  Receipt Date: 20070206
  Transmission Date: 20071010
  Serious: No
  Sender: FDA-Public Use
  Company Number: 2007PV029639

PATIENT
  Age: 52 Year
  Sex: Female
  Weight: 101.1521 kg

DRUGS (3)
  1. BYETTA [Suspect]
     Indication: WEIGHT DECREASED
     Dosage: 5 MCG; BID; SC
     Route: 058
     Dates: start: 20061101
  2. THYROID PILL [Concomitant]
  3. PROPRANOLOL [Concomitant]

REACTIONS (4)
  - GINGIVAL BLEEDING [None]
  - GINGIVAL PAIN [None]
  - SENSITIVITY OF TEETH [None]
  - WEIGHT DECREASED [None]
